FAERS Safety Report 5867066-3 (Version None)
Quarter: 2008Q3

REPORT INFORMATION
  Report Type: 
  Country: None (occurrence: None)
  Receive Date: 20080902
  Receipt Date: 20080822
  Transmission Date: 20090109
  Serious: Yes (Hospitalization)
  Sender: FDA-Public Use
  Company Number: B0534161A

PATIENT
  Age: 50 Year
  Sex: Female

DRUGS (2)
  1. HYCAMTIN [Suspect]
     Dosage: .75MGM2 CYCLIC
     Route: 042
     Dates: start: 20080526
  2. CISPLATYL [Suspect]
     Dosage: 50MGM2 CYCLIC
     Route: 042
     Dates: start: 20080526

REACTIONS (4)
  - DIARRHOEA [None]
  - HYPOTENSION [None]
  - MALAISE [None]
  - URTICARIA [None]
